FAERS Safety Report 5222607-4 (Version None)
Quarter: 2007Q1

REPORT INFORMATION
  Report Type: 
  Country: None (occurrence: None)
  Receive Date: 20070129
  Receipt Date: 20070123
  Transmission Date: 20070707
  Serious: Yes (Other)
  Sender: FDA-Public Use
  Company Number: GB-NOVOPROD-260117

PATIENT
  Sex: Male
  Weight: 89.1 kg

DRUGS (8)
  1. NOVORAPID FLEXPEN [Suspect]
     Indication: INSULIN-REQUIRING TYPE II DIABETES MELLITUS
     Dosage: 67 IU, QD
     Route: 058
     Dates: start: 20051102
  2. GLICLAZIDE [Concomitant]
     Dosage: 320 MG, QD
     Route: 048
     Dates: start: 19990210
  3. METFORMIN HCL [Concomitant]
     Dosage: 2550 MG, QD
     Route: 048
     Dates: start: 20010404
  4. ASPIRIN [Concomitant]
     Dosage: 75 MG, QD
     Route: 048
     Dates: start: 20030101
  5. RAMIPRIL [Concomitant]
     Dosage: 10 MG, QD
     Route: 048
     Dates: start: 20000714
  6. AMLODIPINE [Concomitant]
     Dosage: 10 MG, QD
     Route: 048
     Dates: start: 20040416
  7. BENDROFLUAZIDE [Concomitant]
     Dosage: 2.5 MG, QD
     Route: 048
     Dates: start: 20010817
  8. ACETAMINOPHEN [Concomitant]
     Dosage: 4 G, QD
     Route: 048
     Dates: start: 20040101

REACTIONS (1)
  - ASTHENIA [None]
